FAERS Safety Report 9197236 (Version 1)
Quarter: 2013Q1

REPORT INFORMATION
  Report Type: Spontaneous
  Country: US (occurrence: US)
  Receive Date: 20130328
  Receipt Date: 20130328
  Transmission Date: 20140127
  Serious: Yes (Hospitalization)
  Sender: FDA-Public Use
  Company Number: US-BAYER-2013-035391

PATIENT
  Age: 45 Year
  Sex: Female

DRUGS (5)
  1. YAZ [Suspect]
  2. YASMIN [Suspect]
     Dosage: 1, DAILY
  3. RELPAX [Concomitant]
  4. AFRIN [Concomitant]
  5. CYMBALTA [Concomitant]
     Dosage: 60 MG, DAILY

REACTIONS (1)
  - Thalamic infarction [Recovered/Resolved]
